FAERS Safety Report 16949165 (Version 2)
Quarter: 2020Q1

REPORT INFORMATION
  Report Type: Other
  Country: DE (occurrence: DE)
  Receive Date: 20191023
  Receipt Date: 20200127
  Transmission Date: 20200409
  Serious: Yes (Hospitalization, Other)
  Sender: FDA-Public Use
  Company Number: DE-LUPIN PHARMACEUTICALS INC.-2019-06649

PATIENT
  Age: 15 Year
  Sex: Female
  Weight: 31 kg

DRUGS (3)
  1. PANTOPRAZOL [PANTOPRAZOLE] [Concomitant]
     Active Substance: PANTOPRAZOLE
     Indication: GASTROINTESTINAL HAEMORRHAGE
     Dosage: 20 MILLIGRAM, QD
     Route: 048
  2. LAMOTRIGINE. [Suspect]
     Active Substance: LAMOTRIGINE
     Dosage: (125 - 0 -150 MG)
     Route: 048
  3. LAMOTRIGINE. [Suspect]
     Active Substance: LAMOTRIGINE
     Indication: EPILEPSY
     Dosage: 25 MILLIGRAM, QD
     Route: 048

REACTIONS (2)
  - Vomiting [Unknown]
  - Seizure [Unknown]

NARRATIVE: CASE EVENT DATE: 20181112
